FAERS Safety Report 7129400-6 (Version None)
Quarter: 2010Q4

REPORT INFORMATION
  Report Type: 
  Country: None (occurrence: None)
  Receive Date: 20101130
  Receipt Date: 20101129
  Transmission Date: 20110411
  Serious: Yes (Hospitalization)
  Sender: FDA-Public Use
  Company Number: US-CEPHALON-2010006059

PATIENT
  Sex: Female

DRUGS (5)
  1. NUVIGIL [Suspect]
     Route: 048
  2. MAXZIDE [Concomitant]
  3. POTASSIUM CHLORIDE [Concomitant]
  4. LEVOTHYROXINE SODIUM [Concomitant]
  5. OXYGEN [Concomitant]

REACTIONS (1)
  - ATRIAL FIBRILLATION [None]
